FAERS Safety Report 14114569 (Version 1)
Quarter: 2017Q4

REPORT INFORMATION
  Report Type: Spontaneous
  Country: US (occurrence: US)
  Receive Date: 20171023
  Receipt Date: 20171023
  Transmission Date: 20180321
  Serious: No
  Sender: FDA-Public Use
  Company Number: US-B.I. PHARMACEUTICALS,INC./RIDGEFIELD-2017-BI-056302

PATIENT
  Age: 60 Year
  Sex: Male

DRUGS (1)
  1. SYNJARDY [Suspect]
     Active Substance: EMPAGLIFLOZIN\METFORMIN HYDROCHLORIDE
     Indication: TYPE 2 DIABETES MELLITUS
     Dosage: TWICE A DAY;  FORM STRENGTH: 12.5 MG / 1000 MG; FORMULATION: TABLET? ADMINISTRATION CORRECT? YES ?AC
     Route: 048
     Dates: start: 2014, end: 2016

REACTIONS (2)
  - Lethargy [Not Recovered/Not Resolved]
  - Rash [Recovered/Resolved]

NARRATIVE: CASE EVENT DATE: 201708
